FAERS Safety Report 6443965-9 (Version None)
Quarter: 2009Q4

REPORT INFORMATION
  Report Type: 
  Country: None (occurrence: None)
  Receive Date: 20091116
  Receipt Date: 20091116
  Transmission Date: 20100525
  Serious: Yes (Other)
  Sender: FDA-Public Use
  Company Number: None

PATIENT
  Age: 68 Year
  Sex: Female
  Weight: 57.6068 kg

DRUGS (1)
  1. SYNTHROID [Suspect]
     Indication: THYROID DISORDER

REACTIONS (1)
  - PRODUCT QUALITY ISSUE [None]
